FAERS Safety Report 5326849-9 (Version None)
Quarter: 2007Q2

REPORT INFORMATION
  Report Type: 
  Country: None (occurrence: None)
  Receive Date: 20070516
  Receipt Date: 20070504
  Transmission Date: 20071010
  Serious: Yes (Other)
  Sender: FDA-Public Use
  Company Number: US-PFIZER INC-2007037860

PATIENT
  Sex: Female

DRUGS (3)
  1. CHANTIX [Suspect]
     Indication: EX-SMOKER
  2. OTHER ANTIDIARRHOEALS [Concomitant]
  3. PERCOGESIC [Concomitant]

REACTIONS (2)
  - AGITATION [None]
  - HOMICIDAL IDEATION [None]
